FAERS Safety Report 9866849 (Version 2)
Quarter: 2014Q1

REPORT INFORMATION
  Report Type: Report from Study
  Country: US (occurrence: US)
  Receive Date: 20140204
  Receipt Date: 20140204
  Transmission Date: 20141002
  Serious: Yes (Hospitalization, Other)
  Sender: FDA-Public Use
  Company Number: US-ROCHE-1208660

PATIENT
  Age: 60 Year
  Sex: Female
  Weight: 52.21 kg

DRUGS (7)
  1. PERJETA [Suspect]
     Indication: INFLAMMATORY CARCINOMA OF THE BREAST
     Route: 042
     Dates: start: 201112, end: 20140121
  2. PERJETA [Suspect]
     Route: 042
     Dates: start: 201212, end: 20140121
  3. HERCEPTIN [Suspect]
     Indication: INFLAMMATORY CARCINOMA OF THE BREAST
     Route: 042
     Dates: start: 20110111, end: 20140121
  4. HERCEPTIN [Suspect]
     Route: 042
     Dates: start: 20110111, end: 20140121
  5. TAXOTERE [Concomitant]
     Indication: INFLAMMATORY CARCINOMA OF THE BREAST
     Route: 042
     Dates: start: 2011, end: 20140122
  6. IMODIUM [Concomitant]
     Indication: DIARRHOEA
     Route: 048
     Dates: start: 201212
  7. ZOFRAN [Concomitant]
     Indication: NAUSEA
     Route: 048
     Dates: start: 201212

REACTIONS (23)
  - Device related infection [Unknown]
  - Dehydration [Unknown]
  - Cataract [Unknown]
  - Lymphadenopathy [Unknown]
  - Metastases to skin [Unknown]
  - Tumour marker increased [Unknown]
  - Herpes zoster [Recovered/Resolved]
  - Diarrhoea [Not Recovered/Not Resolved]
  - Nausea [Not Recovered/Not Resolved]
  - Chills [Recovered/Resolved]
  - Hyperhidrosis [Recovering/Resolving]
  - Vomiting [Recovered/Resolved]
  - Dyspnoea [Not Recovered/Not Resolved]
  - Swelling [Unknown]
  - Erythema [Unknown]
  - Herpes zoster [Unknown]
  - Dysphagia [Unknown]
  - Dysphonia [Unknown]
  - Blood creatinine increased [Unknown]
  - Urinary tract infection [Unknown]
  - Blood iron decreased [Unknown]
  - Decreased appetite [Unknown]
  - Depression [Unknown]
